FAERS Safety Report 12491751 (Version 1)
Quarter: 2016Q2

REPORT INFORMATION
  Report Type: Spontaneous
  Country: US (occurrence: US)
  Receive Date: 20160623
  Receipt Date: 20160623
  Transmission Date: 20160815
  Serious: Yes (Life-Threatening)
  Sender: FDA-Public Use
  Company Number: PHEH2016US015439

PATIENT
  Sex: Female

DRUGS (4)
  1. MYFORTIC [Suspect]
     Active Substance: MYCOPHENOLATE SODIUM
     Dosage: 360 MG, BID
     Route: 048
  2. MS CONTIN [Concomitant]
     Active Substance: MORPHINE SULFATE
     Indication: HAEMOTHORAX
     Route: 048
  3. MYFORTIC [Suspect]
     Active Substance: MYCOPHENOLATE SODIUM
     Indication: PRODUCT USED FOR UNKNOWN INDICATION
     Dosage: UNK, TID
     Route: 048
  4. MYFORTIC [Suspect]
     Active Substance: MYCOPHENOLATE SODIUM
     Dosage: 720 MG, TID
     Route: 048

REACTIONS (17)
  - Muscle twitching [Unknown]
  - Muscle tone disorder [Unknown]
  - Dysphonia [Unknown]
  - Infection [Unknown]
  - Respiratory failure [Unknown]
  - Hepatic failure [Unknown]
  - Paraesthesia [Unknown]
  - Gastrointestinal disorder [Unknown]
  - Lymphadenopathy [Unknown]
  - Injury [Unknown]
  - Stomatitis [Unknown]
  - Sleep disorder [Unknown]
  - Blood creatinine abnormal [Unknown]
  - Respiratory arrest [Unknown]
  - Malaise [Unknown]
  - Eye pain [Unknown]
  - Oropharyngeal pain [Unknown]
